FAERS Safety Report 6512369-2 (Version None)
Quarter: 2009Q4

REPORT INFORMATION
  Report Type: 
  Country: None (occurrence: None)
  Receive Date: 20091222
  Receipt Date: 20091207
  Transmission Date: 20100525
  Serious: Yes (Hospitalization)
  Sender: FDA-Public Use
  Company Number: US-BIOGENIDEC-2009BI038390

PATIENT
  Sex: Female
  Weight: 70 kg

DRUGS (13)
  1. TYSABRI [Suspect]
     Indication: MULTIPLE SCLEROSIS
     Route: 042
     Dates: start: 20080318
  2. ADVIL [Concomitant]
     Indication: DRUG USE FOR UNKNOWN INDICATION
  3. ZANAFLEX [Concomitant]
     Indication: DRUG USE FOR UNKNOWN INDICATION
  4. ZANAFLEX [Concomitant]
  5. ZANAFLEX [Concomitant]
  6. ANTIDEPRESSANT (NOS) [Concomitant]
     Indication: DEPRESSION
  7. NEXIUM [Concomitant]
     Indication: DRUG USE FOR UNKNOWN INDICATION
  8. ZOLOFT [Concomitant]
     Indication: DRUG USE FOR UNKNOWN INDICATION
  9. ZOLOFT [Concomitant]
  10. AMBIEN [Concomitant]
     Indication: DRUG USE FOR UNKNOWN INDICATION
  11. XANAX [Concomitant]
     Indication: DRUG USE FOR UNKNOWN INDICATION
  12. BACLOFEN [Concomitant]
     Indication: MUSCLE SPASTICITY
  13. MIDRIN [Concomitant]
     Indication: DRUG USE FOR UNKNOWN INDICATION

REACTIONS (8)
  - BRONCHITIS [None]
  - GASTRITIS [None]
  - IMMUNE SYSTEM DISORDER [None]
  - MOUTH ULCERATION [None]
  - MULTIPLE SCLEROSIS [None]
  - PAIN IN EXTREMITY [None]
  - TARSAL TUNNEL SYNDROME [None]
  - ULCER [None]
